FAERS Safety Report 6757218-2 (Version None)
Quarter: 2010Q2

REPORT INFORMATION
  Report Type: 
  Country: None (occurrence: None)
  Receive Date: 20100607
  Receipt Date: 20100527
  Transmission Date: 20101027
  Serious: Yes (Hospitalization, Other)
  Sender: FDA-Public Use
  Company Number: US-BIOGENIDEC-2010BI018185

PATIENT
  Sex: Female

DRUGS (1)
  1. AVONEX [Suspect]
     Indication: MULTIPLE SCLEROSIS
     Route: 030
     Dates: start: 20080418

REACTIONS (6)
  - ABASIA [None]
  - AMNESIA [None]
  - APHAGIA [None]
  - ASTHMA [None]
  - CONVULSION [None]
  - COUGH [None]
